FAERS Safety Report 6674094-7 (Version None)
Quarter: 2010Q1

REPORT INFORMATION
  Report Type: 
  Country: None (occurrence: None)
  Receive Date: 20100329
  Receipt Date: 20100127
  Transmission Date: 20100710
  Serious: Yes (Hospitalization, Other)
  Sender: FDA-Public Use
  Company Number: 2010012285

PATIENT
  Age: 52 Year
  Sex: Female
  Weight: 67.6 kg

DRUGS (5)
  1. GEODON [Suspect]
     Indication: BIPOLAR DISORDER
     Dosage: 20 MG, 2X/DAY, ORAL
     Route: 048
  2. GEODON [Suspect]
     Indication: SCHIZOPHRENIA
     Dosage: 20 MG, 2X/DAY, ORAL
     Route: 048
  3. ABILIFY [Suspect]
     Dates: start: 20090101
  4. CITALOPRAM HYDROBROMIDE [Suspect]
  5. CLONAZEPAM [Concomitant]

REACTIONS (4)
  - HALLUCINATION, AUDITORY [None]
  - MANIA [None]
  - PARANOIA [None]
  - PERSECUTORY DELUSION [None]
